FAERS Safety Report 24606156 (Version 2)
Quarter: 2025Q1

REPORT INFORMATION
  Report Type: Spontaneous
  Country: BR (occurrence: BR)
  Receive Date: 20241112
  Receipt Date: 20250113
  Transmission Date: 20250409
  Serious: Yes (Hospitalization, Other)
  Sender: NOVO NORDISK
  Company Number: BR-NOVOPROD-1314301

PATIENT
  Sex: Female

DRUGS (1)
  1. OZEMPIC [Suspect]
     Active Substance: SEMAGLUTIDE
     Indication: Weight control
     Route: 058
     Dates: start: 2024

REACTIONS (4)
  - Hypoglycaemic unconsciousness [Unknown]
  - Blood pressure decreased [Unknown]
  - Product use in unapproved indication [Unknown]
  - Counterfeit product administered [Unknown]

NARRATIVE: CASE EVENT DATE: 20240101
